FAERS Safety Report 7651279-4 (Version None)
Quarter: 2011Q3

REPORT INFORMATION
  Report Type: 
  Country: None (occurrence: None)
  Receive Date: 20110802
  Receipt Date: 20110729
  Transmission Date: 20111222
  Serious: Yes (Death, Hospitalization, Other)
  Sender: FDA-Public Use
  Company Number: US-AMGEN-USASP2011035899

PATIENT
  Age: 64 Year
  Sex: Female

DRUGS (5)
  1. SOLU-MEDROL [Concomitant]
  2. VINCRISTINE [Concomitant]
  3. RITUXIMAB [Concomitant]
  4. NPLATE [Suspect]
     Indication: IDIOPATHIC THROMBOCYTOPENIC PURPURA
     Dosage: 2 A?G/KG, QWK
     Route: 058
     Dates: start: 20101230, end: 20110110
  5. IMMUNE GLOBULIN NOS [Concomitant]

REACTIONS (12)
  - EPISTAXIS [None]
  - SEPSIS [None]
  - ACUTE MYELOID LEUKAEMIA [None]
  - HYPERTENSION [None]
  - TRANSAMINASES INCREASED [None]
  - MULTI-ORGAN FAILURE [None]
  - DRUG INEFFECTIVE [None]
  - DIABETES MELLITUS [None]
  - RENAL FAILURE ACUTE [None]
  - SPINAL LAMINECTOMY [None]
  - BONE MARROW DISORDER [None]
  - PANCYTOPENIA [None]
